FAERS Safety Report 10401645 (Version 2)
Quarter: 2014Q3

REPORT INFORMATION
  Report Type: Spontaneous
  Country: ES (occurrence: ES)
  Receive Date: 20140822
  Receipt Date: 20140822
  Transmission Date: 20150326
  Serious: Yes (Hospitalization)
  Sender: FDA-Public Use
  Company Number: ES-RANBAXY-2013R1-74457

PATIENT
  Age: 74 Year
  Sex: Female

DRUGS (2)
  1. GLIBENCLAMIDE [Concomitant]
     Active Substance: GLYBURIDE
     Indication: DIABETES MELLITUS
     Dosage: UNK
     Route: 065
  2. METFORMIN [Suspect]
     Active Substance: METFORMIN HYDROCHLORIDE
     Indication: DIABETES MELLITUS
     Dosage: 850 MG, TID
     Route: 065

REACTIONS (6)
  - Overdose [Unknown]
  - Renal failure acute [Recovering/Resolving]
  - Pancreatitis acute [Unknown]
  - Lactic acidosis [Recovering/Resolving]
  - Rectal adenoma [Unknown]
  - Metabolic acidosis [Recovering/Resolving]
